FAERS Safety Report 5558384-7 (Version None)
Quarter: 2007Q4

REPORT INFORMATION
  Report Type: 
  Country: None (occurrence: None)
  Receive Date: 20071214
  Receipt Date: 20071203
  Transmission Date: 20080405
  Serious: Yes (Other)
  Sender: FDA-Public Use
  Company Number: US-PFIZER INC-2007102434

PATIENT
  Sex: Female
  Weight: 79.4 kg

DRUGS (2)
  1. DILANTIN [Suspect]
     Indication: PETIT MAL EPILEPSY
     Dosage: DAILY DOSE:50MG
  2. PHENOBARBITAL TAB [Concomitant]

REACTIONS (2)
  - PETIT MAL EPILEPSY [None]
  - TINNITUS [None]
